FAERS Safety Report 18822594 (Version 2)
Quarter: 2021Q1

REPORT INFORMATION
  Report Type: Spontaneous
  Country: US (occurrence: US)
  Receive Date: 20210202
  Receipt Date: 20210302
  Transmission Date: 20210419
  Serious: Yes (Disabling, Other)
  Sender: FDA-Public Use
  Company Number: US-BAYER-2021-038138

PATIENT
  Age: 4 Year
  Sex: Male
  Weight: 19.05 kg

DRUGS (3)
  1. GADAVIST [Suspect]
     Active Substance: GADOBUTROL
     Indication: MAGNETIC RESONANCE IMAGING
     Dosage: 1.7 ML, ONCE
     Route: 042
     Dates: start: 20200918, end: 20200918
  2. GADAVIST [Suspect]
     Active Substance: GADOBUTROL
     Indication: BRAIN NEOPLASM
     Dosage: UNK UNK, ONCE
     Route: 042
     Dates: start: 20190815, end: 20190815
  3. GADOLINIUM IN UNSPECIFIED DRUG [Suspect]
     Active Substance: GADOLINIUM

REACTIONS (12)
  - Burning sensation [Not Recovered/Not Resolved]
  - Pain in extremity [Not Recovered/Not Resolved]
  - Paralysis [Not Recovered/Not Resolved]
  - Musculoskeletal stiffness [Not Recovered/Not Resolved]
  - Gadolinium deposition disease [Not Recovered/Not Resolved]
  - Dysphagia [Not Recovered/Not Resolved]
  - Pruritus [Not Recovered/Not Resolved]
  - Aphasia [Not Recovered/Not Resolved]
  - Sitting disability [Not Recovered/Not Resolved]
  - Arthralgia [Not Recovered/Not Resolved]
  - Pain [Not Recovered/Not Resolved]
  - Nontherapeutic agent urine positive [Not Recovered/Not Resolved]

NARRATIVE: CASE EVENT DATE: 20200918
